FAERS Safety Report 4683198-X (Version None)
Quarter: 2005Q2

REPORT INFORMATION
  Report Type: 
  Country: None (occurrence: None)
  Receive Date: 20050602
  Receipt Date: 20050126
  Transmission Date: 20051028
  Serious: No
  Sender: FDA-Public Use
  Company Number: USA050289629

PATIENT
  Age: 46 Year
  Sex: Female

DRUGS (3)
  1. CYMBALTA [Suspect]
     Dosage: 60 MG DAY
     Dates: start: 20050120, end: 20050122
  2. METFORMIN [Concomitant]
  3. LISINOPRIL [Concomitant]

REACTIONS (6)
  - ASTHENIA [None]
  - DIZZINESS [None]
  - FEELING ABNORMAL [None]
  - NERVOUSNESS [None]
  - PALLOR [None]
  - THINKING ABNORMAL [None]
